FAERS Safety Report 9801860 (Version 2)
Quarter: 2014Q1

REPORT INFORMATION
  Report Type: Spontaneous
  Country: US (occurrence: US)
  Receive Date: 20140107
  Receipt Date: 20140205
  Transmission Date: 20141002
  Serious: No
  Sender: FDA-Public Use
  Company Number: US-009507513-1401USA002027

PATIENT
  Age: 74 Year
  Sex: Female

DRUGS (10)
  1. OXYTROL FOR WOMEN [Suspect]
     Indication: INCONTINENCE
     Dosage: UNK, ONCE
     Route: 062
     Dates: start: 20131204, end: 20131208
  2. LEVOTHYROXINE SODIUM [Concomitant]
     Indication: HYPOTHYROIDISM
     Dosage: 11 MG, UNKNOWN
  3. CITALOPRAM [Concomitant]
     Indication: DEPRESSION
     Dosage: 40 MG, UNKNOWN
  4. BUPROPION HYDROCHLORIDE [Concomitant]
     Indication: DEPRESSION
     Dosage: 110 MG, UNKNOWN
  5. LISINOPRIL [Concomitant]
     Indication: HYPERTENSION
     Dosage: 10 MG, UNKNOWN
  6. METOPROLOL SUCCINATE [Concomitant]
     Indication: HYPERTENSION
     Dosage: 50 MG, UNKNOWN
  7. TRICOR (ADENOSINE) [Concomitant]
     Indication: BLOOD CHOLESTEROL INCREASED
     Dosage: 48 MG, UNKNOWN
  8. MELOXICAM [Concomitant]
     Indication: ARTHRITIS
     Dosage: 15 MG, UNKNOWN
  9. AMLODIPINE [Concomitant]
     Indication: BLOOD CHOLESTEROL INCREASED
     Dosage: 10 MG, UNKNOWN
  10. ESTRADIOL [Concomitant]
     Indication: PRODUCT USED FOR UNKNOWN INDICATION
     Dosage: 0.1 MG, UNKNOWN

REACTIONS (4)
  - Application site papules [Recovering/Resolving]
  - Application site burn [Not Recovered/Not Resolved]
  - Application site discolouration [Not Recovered/Not Resolved]
  - Application site erythema [Recovering/Resolving]
